FAERS Safety Report 5923028-9 (Version None)
Quarter: 2008Q4

REPORT INFORMATION
  Report Type: 
  Country: None (occurrence: None)
  Receive Date: 20081018
  Receipt Date: 20081007
  Transmission Date: 20090506
  Serious: Yes (Other)
  Sender: FDA-Public Use
  Company Number: US-PFIZER INC-2008079083

PATIENT
  Sex: Female
  Weight: 131 kg

DRUGS (5)
  1. GENOTROPIN [Suspect]
     Indication: GROWTH HORMONE DEFICIENCY
     Dates: start: 20080912
  2. VITAMIN D [Concomitant]
  3. PAXIL [Concomitant]
  4. NAPROXEN [Concomitant]
  5. LORTAB [Concomitant]

REACTIONS (4)
  - FATIGUE [None]
  - PAIN [None]
  - PAIN IN EXTREMITY [None]
  - PHLEBECTOMY [None]
